FAERS Safety Report 8089414-9 (Version None)
Quarter: 2012Q1

REPORT INFORMATION
  Report Type: 
  Country: None (occurrence: None)
  Receive Date: 20120128
  Receipt Date: 20110621
  Transmission Date: 20120608
  Serious: No
  Sender: FDA-Public Use
  Company Number: US-ABBOTT-11P-163-0725169-00

PATIENT
  Sex: Female
  Weight: 122.58 kg

DRUGS (13)
  1. HUMIRA [Suspect]
     Indication: CROHN'S DISEASE
     Route: 058
     Dates: start: 20090601, end: 20091130
  2. HYDROCORTISONE [Suspect]
     Indication: WEIGHT DECREASED
  3. LISINOPRIL [Concomitant]
     Indication: HYPERTENSION
  4. OMEPRAZOLE [Concomitant]
     Indication: GASTROOESOPHAGEAL REFLUX DISEASE
     Dosage: 40 MG DAILY
  5. AMBIEN [Concomitant]
     Indication: INSOMNIA
     Dosage: 10 MG DAILY
  6. SODIUM ALENDRONATE [Concomitant]
     Indication: OSTEOPENIA
     Dosage: 170 MG WEEKLY
  7. PAROXETINE HCL [Concomitant]
     Indication: DEPRESSION
     Dosage: 25 MG DAILY
  8. CALCIUM +D [Concomitant]
     Indication: MINERAL SUPPLEMENTATION
     Dosage: 1200 MG DAILY
  9. SIMVASTATIN [Concomitant]
     Indication: BLOOD CHOLESTEROL INCREASED
  10. ALPRAZOLAM [Concomitant]
     Indication: ANXIETY DISORDER
     Dosage: 1 MG DAILY
  11. HUMIRA [Suspect]
     Dates: start: 20110601
  12. FOSAMAX [Concomitant]
     Indication: OSTEOPOROSIS
  13. HYDROCORTISONE [Suspect]
     Indication: CROHN'S DISEASE
     Dosage: ONE IN ONE DAY AT BEDTIME
     Route: 054
     Dates: start: 20110401

REACTIONS (11)
  - CONSTIPATION [None]
  - CROHN'S DISEASE [None]
  - HYPOGLYCAEMIA [None]
  - HYPERHIDROSIS [None]
  - TREMOR [None]
  - ABDOMINAL PAIN UPPER [None]
  - FUNCTIONAL GASTROINTESTINAL DISORDER [None]
  - DIVERTICULUM [None]
  - COLONIC STENOSIS [None]
  - WEIGHT DECREASED [None]
  - WEIGHT INCREASED [None]
